FAERS Safety Report 4384995-0 (Version None)
Quarter: 2004Q2

REPORT INFORMATION
  Report Type: 
  Country: None (occurrence: None)
  Receive Date: 20040607
  Receipt Date: 20030410
  Transmission Date: 20050107
  Serious: Yes (Other)
  Sender: FDA-Public Use
  Company Number: 335908

PATIENT
  Age: 17 Year
  Sex: Female

DRUGS (1)
  1. ACCUTANE [Suspect]
     Dosage: 40 MG ORAL
     Route: 048
     Dates: start: 20011115, end: 20020315

REACTIONS (2)
  - DEPRESSION [None]
  - IRRITABILITY [None]
